FAERS Safety Report 21448345 (Version 1)
Quarter: 2022Q4

REPORT INFORMATION
  Report Type: Report from Study
  Country: MX (occurrence: MX)
  Receive Date: 20221013
  Receipt Date: 20221013
  Transmission Date: 20230112
  Serious: Yes (Hospitalization)
  Sender: FDA-Public Use
  Company Number: MX-ABBVIE-4151475

PATIENT
  Age: 54 Year
  Sex: Female
  Weight: 52 kg

DRUGS (3)
  1. HUMIRA [Suspect]
     Active Substance: ADALIMUMAB
     Indication: Ankylosing spondylitis
     Dosage: STRENGTH: 40 MG
     Route: 058
     Dates: start: 20220306, end: 202209
  2. AZULFIDINE [Concomitant]
     Active Substance: SULFASALAZINE
     Indication: Pain
     Dates: start: 20221010
  3. KARET [Concomitant]
     Indication: Hyperthyroidism
     Dosage: THREE DAYS FULL TABLET, FOUR DAYS 3/4 TABLET

REACTIONS (3)
  - Cervical cord compression [Recovering/Resolving]
  - Throat irritation [Recovering/Resolving]
  - Oropharyngeal pain [Recovering/Resolving]

NARRATIVE: CASE EVENT DATE: 20220501
